FAERS Safety Report 5235204-1 (Version None)
Quarter: 2007Q1

REPORT INFORMATION
  Report Type: 
  Country: None (occurrence: None)
  Receive Date: 20070212
  Receipt Date: 20070205
  Transmission Date: 20070707
  Serious: Yes (Other)
  Sender: FDA-Public Use
  Company Number: CA-SOLVAY-00307000357

PATIENT
  Sex: Female

DRUGS (6)
  1. CREON [Suspect]
     Indication: ILL-DEFINED DISORDER
     Dosage: DAILY DOSE:  UNKNOWN
     Route: 065
  2. CREON [Suspect]
     Dosage: DAILY DOSE: 100 MILLIGRAM(S)
     Route: 065
     Dates: start: 20050101
  3. CREON [Suspect]
     Dosage: DAILY DOSE: 3 DOSAGE FORM
     Route: 065
     Dates: start: 20070101
  4. RANITIDINE [Concomitant]
     Indication: ILL-DEFINED DISORDER
     Dosage: DAILY DOSE:  UNKNOWN
     Route: 065
  5. DIABETES MEDICATION (NOS) [Concomitant]
     Indication: ILL-DEFINED DISORDER
     Dosage: DAILY DOSE:  UNKNOWN
     Route: 065
  6. VITAMIN AND MINERAL SUPPLEMENTS (NOS) [Concomitant]
     Indication: ILL-DEFINED DISORDER
     Dosage: DAILY DOSE:  UNKNOWN
     Route: 065

REACTIONS (4)
  - ANAL DISCOMFORT [None]
  - CONSTIPATION [None]
  - FAECES DISCOLOURED [None]
  - HERNIA [None]
